FAERS Safety Report 7400191-4 (Version None)
Quarter: 2011Q2

REPORT INFORMATION
  Report Type: 
  Country: None (occurrence: None)
  Receive Date: 20110405
  Receipt Date: 20110405
  Transmission Date: 20111010
  Serious: Yes (Other)
  Sender: FDA-Public Use
  Company Number: None

PATIENT
  Age: 47 Year
  Sex: Female
  Weight: 97.5234 kg

DRUGS (1)
  1. ESTRACE [Suspect]
     Indication: MENOPAUSE
     Dosage: 1 GRAM DAILY 3WEEKS, OFF 1 WEE VAG
     Route: 067
     Dates: start: 20110204, end: 20110401

REACTIONS (5)
  - VAGINITIS BACTERIAL [None]
  - PRODUCT PACKAGING ISSUE [None]
  - VULVOVAGINAL PRURITUS [None]
  - VAGINAL ODOUR [None]
  - VULVOVAGINAL ERYTHEMA [None]
